FAERS Safety Report 7914764-3 (Version None)
Quarter: 2011Q4

REPORT INFORMATION
  Report Type: 
  Country: None (occurrence: None)
  Receive Date: 20111115
  Receipt Date: 20111111
  Transmission Date: 20120403
  Serious: Yes (Other)
  Sender: FDA-Public Use
  Company Number: PHEH2011US009259

PATIENT
  Age: 60 Year
  Sex: Male
  Weight: 73.469 kg

DRUGS (1)
  1. TOBI [Suspect]
     Indication: CYSTIC FIBROSIS
     Dosage: 300 MG, INHALE 1 AMPULE TWICE A DAY
     Dates: start: 20110412

REACTIONS (1)
  - UPPER RESPIRATORY TRACT INFECTION [None]
